FAERS Safety Report 11800687 (Version 1)
Quarter: 2015Q4

REPORT INFORMATION
  Report Type: Spontaneous
  Country: CA (occurrence: CA)
  Receive Date: 20151204
  Receipt Date: 20151204
  Transmission Date: 20160305
  Serious: Yes (Other)
  Sender: FDA-Public Use
  Company Number: CA-ROCHE-1671688

PATIENT
  Age: 70 Year
  Sex: Female

DRUGS (3)
  1. XOLAIR [Suspect]
     Active Substance: OMALIZUMAB
     Indication: ASTHMA
     Route: 058
     Dates: start: 20130118
  2. SYMBICORT [Concomitant]
     Active Substance: BUDESONIDE\FORMOTEROL FUMARATE DIHYDRATE
  3. VENTOLINE [Concomitant]
     Active Substance: ALBUTEROL

REACTIONS (6)
  - Obstructive airways disorder [Unknown]
  - Productive cough [Unknown]
  - Wheezing [Recovered/Resolved]
  - Forced expiratory volume decreased [Unknown]
  - Abdominal pain upper [Recovered/Resolved]
  - Respiratory tract congestion [Recovered/Resolved]

NARRATIVE: CASE EVENT DATE: 20130118
